FAERS Safety Report 10684880 (Version 2)
Quarter: 2014Q4

REPORT INFORMATION
  Report Type: Report from Study
  Country: US (occurrence: US)
  Receive Date: 20141231
  Receipt Date: 20141231
  Transmission Date: 20150529
  Serious: Yes (Other)
  Sender: FDA-Public Use
  Company Number: PHEH2014US018167

PATIENT
  Sex: Female

DRUGS (1)
  1. AFINITOR [Suspect]
     Active Substance: EVEROLIMUS
     Indication: NEOPLASM MALIGNANT
     Dosage: 5 MG, QD
     Route: 048

REACTIONS (11)
  - Haematuria [Unknown]
  - Abdominal hernia [Unknown]
  - Cardiomyopathy [Unknown]
  - Ureteric obstruction [Unknown]
  - Nephropathy [Unknown]
  - Ovarian cancer [Unknown]
  - Product physical issue [Unknown]
  - Open angle glaucoma [Unknown]
  - Neuroendocrine carcinoma [Unknown]
  - Second primary malignancy [Unknown]
  - Pulmonary mass [Unknown]
